FAERS Safety Report 21298185 (Version 1)
Quarter: 2022Q3

REPORT INFORMATION
  Report Type: Spontaneous
  Country: IT (occurrence: IT)
  Receive Date: 20220906
  Receipt Date: 20220906
  Transmission Date: 20221026
  Serious: Yes (Life-Threatening)
  Sender: FDA-Public Use
  Company Number: None

PATIENT
  Age: 40 Year
  Sex: Female
  Weight: 67 kg

DRUGS (4)
  1. ROCURONIUM BROMIDE [Suspect]
     Active Substance: ROCURONIUM BROMIDE
     Indication: Neuromuscular blocking therapy
     Dosage: 100 MG
     Route: 042
     Dates: start: 20220601, end: 20220601
  2. PROPOFOL [Concomitant]
     Active Substance: PROPOFOL
     Indication: General anaesthesia
     Dosage: 150 MG
     Route: 042
     Dates: start: 20220601, end: 20220601
  3. FENTANYL [Concomitant]
     Active Substance: FENTANYL
     Indication: Analgesic therapy
     Dosage: 100 MCG
     Route: 042
     Dates: start: 20220601, end: 20220601
  4. ATROPINE [Concomitant]
     Active Substance: ATROPINE
     Indication: Presyncope
     Route: 042
     Dates: start: 20220601, end: 20220601

REACTIONS (4)
  - Cardiac arrest [Recovered/Resolved with Sequelae]
  - Bronchostenosis [Recovered/Resolved with Sequelae]
  - Bradycardia [Recovered/Resolved with Sequelae]
  - Rash [Recovering/Resolving]
